FAERS Safety Report 4942656-0 (Version None)
Quarter: 2006Q1

REPORT INFORMATION
  Report Type: 
  Country: None (occurrence: None)
  Receive Date: 20060308
  Receipt Date: 20060301
  Transmission Date: 20060701
  Serious: Yes (Death, Life-Threatening, Hospitalization)
  Sender: FDA-Public Use
  Company Number: 200610251BNE

PATIENT
  Age: 50 Year
  Sex: Female

DRUGS (10)
  1. MOXIFLOXACIN HCL [Suspect]
     Indication: PNEUMONIA
     Dosage: 400 MG, TOTAL DAILY, ORAL
     Route: 048
     Dates: start: 20060211, end: 20060216
  2. ATROVENT [Concomitant]
  3. CYCLIZINE [Concomitant]
  4. AMOXICILLIN + CLAVULANATE POTASSIUM [Concomitant]
  5. ERYTHROMYCIN [Concomitant]
  6. LANSOPRAZOLE [Concomitant]
  7. WARFARIN [Concomitant]
  8. ONDANSETRON [Concomitant]
  9. DEXAMETHASONE TAB [Concomitant]
  10. SERETIDE MITE [Concomitant]

REACTIONS (4)
  - COAGULOPATHY [None]
  - HEPATIC FAILURE [None]
  - HEPATITIS ACUTE [None]
  - MULTI-ORGAN FAILURE [None]
